FAERS Safety Report 7648044-0 (Version None)
Quarter: 2011Q3

REPORT INFORMATION
  Report Type: 
  Country: None (occurrence: None)
  Receive Date: 20110801
  Receipt Date: 20110725
  Transmission Date: 20111222
  Serious: Yes (Other)
  Sender: FDA-Public Use
  Company Number: DE-JNJFOC-20110710841

PATIENT
  Sex: Female

DRUGS (2)
  1. ROGAINE [Suspect]
     Indication: PRODUCT USED FOR UNKNOWN INDICATION
     Route: 061
     Dates: start: 20110620
  2. ROGAINE [Suspect]
     Route: 061

REACTIONS (3)
  - DIZZINESS [None]
  - HEART RATE IRREGULAR [None]
  - CHEST PAIN [None]
